FAERS Safety Report 7994971-4 (Version None)
Quarter: 2011Q4

REPORT INFORMATION
  Report Type: 
  Country: None (occurrence: None)
  Receive Date: 20111220
  Receipt Date: 20111205
  Transmission Date: 20120403
  Serious: No
  Sender: FDA-Public Use
  Company Number: US-MYLANLABS-2011S1024098

PATIENT
  Age: 56 Year
  Sex: Female

DRUGS (2)
  1. LETROZOLE [Suspect]
     Indication: BREAST CANCER
     Route: 048
     Dates: start: 20110601, end: 20110701
  2. LETROZOLE [Suspect]
     Route: 048

REACTIONS (2)
  - RASH GENERALISED [None]
  - UPPER RESPIRATORY TRACT INFECTION [None]
